FAERS Safety Report 5188531-0 (Version None)
Quarter: 2006Q4

REPORT INFORMATION
  Report Type: 
  Country: None (occurrence: None)
  Receive Date: 20061214
  Receipt Date: 20061205
  Transmission Date: 20070319
  Serious: Yes (Hospitalization, Other)
  Sender: FDA-Public Use
  Company Number: 2006-01939

PATIENT
  Age: 46 Year
  Sex: Male
  Weight: 66.7 kg

DRUGS (5)
  1. VELCADE [Suspect]
     Indication: COLORECTAL CANCER
     Dosage: 10.00 MG, INTRAVENOUS
     Route: 042
     Dates: start: 20060713, end: 20060713
  2. OXALIPLATIN [Suspect]
     Indication: COLORECTAL CANCER
     Dosage: 85.00 MG,
     Dates: start: 20060713
  3. LEUCOVORIN CALCIUM [Concomitant]
  4. 5-FLUORUORACIL (FLUORUORACIL) [Concomitant]
  5. PERCOCET [Concomitant]

REACTIONS (32)
  - ASTHENIA [None]
  - AUTONOMIC NERVOUS SYSTEM IMBALANCE [None]
  - BONE MARROW DISORDER [None]
  - BONE MARROW FAILURE [None]
  - CHILLS [None]
  - CSF LYMPHOCYTE COUNT ABNORMAL [None]
  - CSF NEUTROPHIL COUNT INCREASED [None]
  - CSF PROTEIN INCREASED [None]
  - DIZZINESS [None]
  - DYSGRAPHIA [None]
  - DYSPEPSIA [None]
  - GAIT DISTURBANCE [None]
  - HEPATIC NEOPLASM [None]
  - HYPERHIDROSIS [None]
  - HYPOAESTHESIA [None]
  - INSOMNIA [None]
  - LOSS OF CONSCIOUSNESS [None]
  - MEDIAN NERVE INJURY [None]
  - METASTASES TO LIVER [None]
  - MYALGIA [None]
  - NAUSEA [None]
  - ORTHOSTATIC HYPOTENSION [None]
  - OVERDOSE [None]
  - PAIN [None]
  - PAIN IN EXTREMITY [None]
  - PERIPHERAL SENSORIMOTOR NEUROPATHY [None]
  - RED BLOOD CELLS CSF POSITIVE [None]
  - SPINAL DEFORMITY [None]
  - UNDERDOSE [None]
  - URINARY RETENTION [None]
  - VOMITING [None]
  - WRONG DRUG ADMINISTERED [None]
